FAERS Safety Report 4951649-9 (Version None)
Quarter: 2006Q1

REPORT INFORMATION
  Report Type: 
  Country: None (occurrence: None)
  Receive Date: 20060320
  Receipt Date: 20060302
  Transmission Date: 20060701
  Serious: Yes (Death, Other)
  Sender: FDA-Public Use
  Company Number: 2006-00494

PATIENT
  Age: 64 Year
  Sex: Male

DRUGS (3)
  1. VELCADE [Suspect]
     Indication: LEUKAEMIA PLASMACYTIC
     Dosage: 1.30 MG, INTRAVENOUS
     Route: 042
     Dates: start: 20051229, end: 20060127
  2. THALIDOMIDE [Concomitant]
  3. DEXAMETHASONE TAB [Concomitant]

REACTIONS (3)
  - STEVENS-JOHNSON SYNDROME [None]
  - SUDDEN DEATH [None]
  - TOXIC EPIDERMAL NECROLYSIS [None]
